FAERS Safety Report 13689972 (Version 4)
Quarter: 2017Q4

REPORT INFORMATION
  Report Type: Spontaneous
  Country: US (occurrence: US)
  Receive Date: 20170626
  Receipt Date: 20171113
  Transmission Date: 20180320
  Serious: Yes (Other)
  Sender: FDA-Public Use
  Company Number: US-PFIZER INC-2017273521

PATIENT
  Age: 57 Year
  Sex: Male
  Weight: 117.9 kg

DRUGS (2)
  1. VIAGRA [Suspect]
     Active Substance: SILDENAFIL CITRATE
     Indication: ERECTILE DYSFUNCTION
     Dosage: 100 MG, UNK
     Route: 048
     Dates: start: 2001
  2. METFORMIN [Concomitant]
     Active Substance: METFORMIN HYDROCHLORIDE
     Indication: DIABETES MELLITUS
     Dosage: 500 MG, UNK

REACTIONS (5)
  - Neoplasm malignant [Unknown]
  - Urinary tract infection [Unknown]
  - Renal cancer [Unknown]
  - Renal cyst [Unknown]
  - Haemorrhage [Unknown]
